FAERS Safety Report 6544583-4 (Version None)
Quarter: 2010Q1

REPORT INFORMATION
  Report Type: 
  Country: None (occurrence: None)
  Receive Date: 20100115
  Receipt Date: 20100106
  Transmission Date: 20100710
  Serious: Yes (Other)
  Sender: FDA-Public Use
  Company Number: 2009US004535

PATIENT
  Age: 77 Year
  Sex: Female
  Weight: 64 kg

DRUGS (11)
  1. PROTOPIC [Suspect]
     Indication: SKIN IRRITATION
     Dosage: 0.1%, TOPICAL
     Route: 061
     Dates: start: 20091101, end: 20091101
  2. RITMONORM (PROPAFENONE HYDROCHLORIDE) [Concomitant]
  3. ENALAPRIL MALEATE AND HYDROCHLOROTHIAZIDE [Concomitant]
  4. LASIX [Concomitant]
  5. OMEPRAZOLE [Concomitant]
  6. DOMPERIDONE (DOMPERIDONE) [Concomitant]
  7. BROMAZEPAM (BROMAZEPAM) [Concomitant]
  8. PARACIL (PARACETAMOL) [Concomitant]
  9. B COMPLEX (VITAMIN-B-KOMPLEX STANDARD) TABLET ONGOING [Concomitant]
  10. GLUCOSAMINE (GLUCOSAMINE) [Concomitant]
  11. MINERAL OIL EMULSION (MINERAL OIL EMULSION) [Concomitant]

REACTIONS (4)
  - CONDITION AGGRAVATED [None]
  - DYSPNOEA [None]
  - LARYNGEAL OEDEMA [None]
  - RASH MACULAR [None]
